FAERS Safety Report 4527442-8 (Version None)
Quarter: 2004Q4

REPORT INFORMATION
  Report Type: 
  Country: None (occurrence: None)
  Receive Date: 20041215
  Receipt Date: 20041115
  Transmission Date: 20050328
  Serious: Yes (Death)
  Sender: FDA-Public Use
  Company Number: 200413499JP

PATIENT
  Age: 59 Year
  Sex: Male
  Weight: 53.1 kg

DRUGS (10)
  1. AMARYL [Suspect]
     Indication: DIABETES MELLITUS
     Route: 048
     Dates: start: 20040911, end: 20040918
  2. CONIEL [Concomitant]
     Indication: HYPERTENSION
     Dosage: DOSE: 2 TABLETS
     Route: 048
     Dates: start: 20040626, end: 20040918
  3. LENDORMIN [Concomitant]
     Indication: INSOMNIA
     Route: 048
     Dates: start: 20040602, end: 20040918
  4. ALPRAZOLAM [Concomitant]
     Indication: INSOMNIA
     Dosage: DOSE: 2 TABLETS
     Route: 048
     Dates: start: 20040602, end: 20040918
  5. XYLITOL [Concomitant]
     Indication: ANOREXIA
     Route: 042
     Dates: start: 20040124, end: 20040915
  6. TATHION [Concomitant]
     Route: 042
     Dates: start: 20040124, end: 20040915
  7. PROHEPARUM [Concomitant]
     Indication: HEPATIC FUNCTION ABNORMAL
     Dosage: DOSE: 6 TABLETS
     Route: 048
     Dates: start: 20020531, end: 20040918
  8. NEUROVITAN [Concomitant]
     Indication: HEPATIC FUNCTION ABNORMAL
     Dosage: DOSE: 3 TABLETS
     Route: 048
     Dates: start: 20030912, end: 20040918
  9. NEOLAMIN 3B INJ. [Concomitant]
     Dosage: DOSE: 1 A
     Route: 042
     Dates: start: 20040124, end: 20040915
  10. TERPERAN [Concomitant]
     Indication: ANOREXIA

REACTIONS (4)
  - ACUTE CORONARY SYNDROME [None]
  - HEPATIC CIRRHOSIS [None]
  - HEPATIC FAILURE [None]
  - SUDDEN DEATH [None]
